FAERS Safety Report 21099749 (Version 1)
Quarter: 2022Q3

REPORT INFORMATION
  Report Type: Spontaneous
  Country: CN (occurrence: CN)
  Receive Date: 20220719
  Receipt Date: 20220719
  Transmission Date: 20221027
  Serious: Yes (Other)
  Sender: FDA-Public Use
  Company Number: CN-PFIZER INC-202200964646

PATIENT

DRUGS (1)
  1. XALKORI [Suspect]
     Active Substance: CRIZOTINIB
     Indication: Lung neoplasm malignant
     Dosage: UNK
     Route: 048
     Dates: start: 202111

REACTIONS (5)
  - Carcinoembryonic antigen increased [Unknown]
  - Tumour marker increased [Unknown]
  - Carbohydrate antigen 125 increased [Unknown]
  - Cytokeratin 19 increased [Unknown]
  - Oedema [Recovering/Resolving]
